FAERS Safety Report 24941444 (Version 2)
Quarter: 2025Q3

REPORT INFORMATION
  Report Type: Spontaneous
  Country: EU (occurrence: EU)
  Receive Date: 20250207
  Receipt Date: 20250911
  Transmission Date: 20251020
  Serious: Yes (Other)
  Sender: CHEPLAPHARM
  Company Number: EU-ROCHE-10000192869

PATIENT

DRUGS (3)
  1. VALGANCICLOVIR [Suspect]
     Active Substance: VALGANCICLOVIR
     Indication: Product used for unknown indication
  2. CELLCEPT [Suspect]
     Active Substance: MYCOPHENOLATE MOFETIL
     Indication: Product used for unknown indication
  3. NEUPOGEN [Concomitant]
     Active Substance: FILGRASTIM

REACTIONS (4)
  - Colitis [Unknown]
  - Pneumonia [Unknown]
  - Respiratory disorder [Unknown]
  - Cytomegalovirus infection [Unknown]
